FAERS Safety Report 6847305-2 (Version None)
Quarter: 2010Q3

REPORT INFORMATION
  Report Type: 
  Country: None (occurrence: None)
  Receive Date: 20100713
  Receipt Date: 20100702
  Transmission Date: 20110219
  Serious: Yes (Life-Threatening, Hospitalization)
  Sender: FDA-Public Use
  Company Number: 014958

PATIENT
  Age: 34 Year
  Sex: Female

DRUGS (3)
  1. KEPPRA [Suspect]
     Indication: CONVULSION
     Dosage: (1 G BID, 100 MG/ML VIAL 5 ML PERFUSION SOLUTION INTRAVENOUS)
     Route: 042
     Dates: start: 20100226, end: 20100309
  2. FENITOINA /00017401/ (FENITOIN) (NOT SPECIFIED) [Suspect]
     Indication: CONVULSION
     Dosage: (375 MG TID INTRAVENOUS)
     Route: 042
     Dates: start: 20100226, end: 20100312
  3. TIAPRIZAL (TIAPRIZAL) [Suspect]
     Indication: AGITATION
     Dosage: (300 MG TID, 100 MG INJECTABLE SOLUTION 12 AMPOULES OF 2 ML INTRAVENOUS)
     Route: 042
     Dates: start: 20100305, end: 20100310

REACTIONS (11)
  - AGITATION [None]
  - ALANINE AMINOTRANSFERASE INCREASED [None]
  - ASPARTATE AMINOTRANSFERASE INCREASED [None]
  - BLOOD ALKALINE PHOSPHATASE INCREASED [None]
  - BLOOD CREATINE PHOSPHOKINASE INCREASED [None]
  - CONVULSION [None]
  - DISSOCIATION [None]
  - DRUG INTERACTION [None]
  - DYSTONIA [None]
  - MENINGORADICULITIS [None]
  - NEUROLEPTIC MALIGNANT SYNDROME [None]
